FAERS Safety Report 10688168 (Version 8)
Quarter: 2016Q1

REPORT INFORMATION
  Report Type: Spontaneous
  Country: JP (occurrence: None)
  Receive Date: 20141231
  Receipt Date: 20160209
  Transmission Date: 20160525
  Serious: Yes (Death, Hospitalization, Other)
  Sender: FDA-Public Use
  Company Number: ADR-2014-02445

PATIENT
  Age: 10 Year
  Sex: Female
  Weight: 12 kg

DRUGS (2)
  1. SOPORIFIC DRUG - EYE DROPS; (NOT SPECIFIED) [Suspect]
     Active Substance: UNSPECIFIED INGREDIENT
  2. GABALON INTRATHECAL [Suspect]
     Active Substance: BACLOFEN
     Dosage: 190 MCG/DAY

REACTIONS (12)
  - Muscle contracture [None]
  - Cyanosis [None]
  - Road traffic accident [None]
  - Insomnia [None]
  - Adverse drug reaction [None]
  - Muscle spasticity [None]
  - Muscle tightness [None]
  - No therapeutic response [None]
  - Hypertonia [None]
  - Disease progression [None]
  - Blood creatine phosphokinase increased [None]
  - Respiratory failure [None]
